FAERS Safety Report 15465421 (Version 1)
Quarter: 2018Q4

REPORT INFORMATION
  Report Type: Spontaneous
  Country: ES (occurrence: ES)
  Receive Date: 20181004
  Receipt Date: 20181004
  Transmission Date: 20190204
  Serious: Yes (Other)
  Sender: FDA-Public Use
  Company Number: ES-ALLERGAN-1847309US

PATIENT
  Age: 76 Year
  Sex: Female

DRUGS (4)
  1. ACETYLCYSTEINE. [Concomitant]
     Active Substance: ACETYLCYSTEINE
     Dosage: UNK
     Route: 065
  2. DICLOFENAC [Suspect]
     Active Substance: DICLOFENAC
     Indication: CATARACT OPERATION
     Dosage: UNK
     Route: 047
  3. PREDNISOLONE UNK [Suspect]
     Active Substance: PREDNISOLONE
     Indication: CATARACT OPERATION
     Dosage: UNK
     Route: 047
  4. MOXIFLOXACIN. [Concomitant]
     Active Substance: MOXIFLOXACIN
     Dosage: UNK
     Route: 061

REACTIONS (2)
  - Corneal lesion [Recovered/Resolved]
  - Off label use [Unknown]
